FAERS Safety Report 14303785 (Version 1)
Quarter: 2017Q4

REPORT INFORMATION
  Report Type: Report from Study
  Country: US (occurrence: US)
  Receive Date: 20171219
  Receipt Date: 20171219
  Transmission Date: 20180321
  Serious: Yes (Hospitalization)
  Sender: FDA-Public Use
  Company Number: US-BAYER-2017-185681

PATIENT
  Age: 34 Year
  Sex: Female
  Weight: 126.8 kg

DRUGS (8)
  1. ADEMPAS [Suspect]
     Active Substance: RIOCIGUAT
     Indication: PULMONARY ARTERIAL HYPERTENSION
     Dosage: 1.5 MG, TID
     Route: 048
  2. LETAIRIS [Concomitant]
     Active Substance: AMBRISENTAN
     Dosage: UNK
  3. ADEMPAS [Suspect]
     Active Substance: RIOCIGUAT
     Indication: PULMONARY ARTERIAL HYPERTENSION
     Dosage: 1 MG, TID
     Route: 048
     Dates: start: 20171020
  4. ADEMPAS [Suspect]
     Active Substance: RIOCIGUAT
     Indication: PULMONARY ARTERIAL HYPERTENSION
     Dosage: 1 MG, TID
     Route: 048
  5. DILTIAZEM. [Concomitant]
     Active Substance: DILTIAZEM
     Dosage: UNK
  6. VELETRI [Concomitant]
     Active Substance: EPOPROSTENOL
     Dosage: UNK
  7. ADEMPAS [Suspect]
     Active Substance: RIOCIGUAT
     Indication: PULMONARY ARTERIAL HYPERTENSION
     Dosage: 1 MG, TID
     Route: 048
  8. ADEMPAS [Suspect]
     Active Substance: RIOCIGUAT
     Indication: PULMONARY ARTERIAL HYPERTENSION
     Dosage: 0.5 MG, TID
     Route: 048
     Dates: start: 20170914, end: 20170922

REACTIONS (17)
  - Flushing [Unknown]
  - Diarrhoea [Not Recovered/Not Resolved]
  - Headache [Unknown]
  - Abdominal pain [Not Recovered/Not Resolved]
  - Muscle spasms [None]
  - Ear infection [Unknown]
  - Gastrooesophageal reflux disease [Unknown]
  - Burning sensation [None]
  - Pyrexia [Not Recovered/Not Resolved]
  - Gastrointestinal disorder [None]
  - Chest discomfort [Unknown]
  - Catheter site infection [Unknown]
  - Vertigo [Unknown]
  - Nausea [Not Recovered/Not Resolved]
  - Vomiting [Not Recovered/Not Resolved]
  - Catheter site discharge [Unknown]
  - Nausea [Unknown]

NARRATIVE: CASE EVENT DATE: 2017
